FAERS Safety Report 9565159 (Version 2)
Quarter: 2013Q4

REPORT INFORMATION
  Report Type: Spontaneous
  Country: FR (occurrence: FR)
  Receive Date: 20130930
  Receipt Date: 20131009
  Transmission Date: 20140711
  Serious: Yes (Hospitalization)
  Sender: FDA-Public Use
  Company Number: FR-ABBVIE-13P-056-1150932-00

PATIENT
  Sex: Male
  Weight: 79 kg

DRUGS (1)
  1. HUMIRA [Suspect]
     Indication: PSORIASIS
     Dosage: 160 MG AS INDUCTION DOSE
     Route: 058
     Dates: start: 20130819, end: 20130819

REACTIONS (2)
  - Prostatitis [Recovered/Resolved]
  - Orchitis [Recovered/Resolved]
